FAERS Safety Report 5933836-6 (Version None)
Quarter: 2008Q4

REPORT INFORMATION
  Report Type: 
  Country: None (occurrence: None)
  Receive Date: 20081029
  Receipt Date: 20081021
  Transmission Date: 20090506
  Serious: Yes (Other)
  Sender: FDA-Public Use
  Company Number: US-BAYER-200830770NA

PATIENT
  Age: 74 Year
  Sex: Female

DRUGS (7)
  1. NEXAVAR [Suspect]
     Indication: HEPATIC NEOPLASM MALIGNANT
     Dosage: TOTAL DAILY DOSE: 400 MG  UNIT DOSE: 200 MG
     Route: 048
     Dates: start: 20080808, end: 20080812
  2. NEXAVAR [Suspect]
     Dosage: TOTAL DAILY DOSE: 800 MG  UNIT DOSE: 200 MG
     Route: 048
     Dates: start: 20080813, end: 20080817
  3. NEXAVAR [Suspect]
     Dosage: TOTAL DAILY DOSE: 400 MG  UNIT DOSE: 200 MG
     Route: 048
     Dates: start: 20080818, end: 20080820
  4. SYNTHROID [Concomitant]
  5. COUMADIN [Concomitant]
  6. VASOTEC [Concomitant]
  7. TOPROL-XL [Concomitant]

REACTIONS (5)
  - ABDOMINAL PAIN UPPER [None]
  - AMNESIA [None]
  - DIARRHOEA [None]
  - FATIGUE [None]
  - RASH GENERALISED [None]
